FAERS Safety Report 6469481-6 (Version None)
Quarter: 2009Q4

REPORT INFORMATION
  Report Type: 
  Country: None (occurrence: None)
  Receive Date: 20091202
  Receipt Date: 20091202
  Transmission Date: 20100525
  Serious: Yes (Hospitalization)
  Sender: FDA-Public Use
  Company Number: None

PATIENT
  Sex: Male
  Weight: 70 kg

DRUGS (1)
  1. MEMANTINE HYDROCHLORIDE [Suspect]
     Dosage: 5 MG

REACTIONS (2)
  - RESPIRATORY DISTRESS [None]
  - SUPERIOR VENA CAVAL OCCLUSION [None]
